FAERS Safety Report 7677845-8 (Version None)
Quarter: 2011Q3

REPORT INFORMATION
  Report Type: 
  Country: None (occurrence: None)
  Receive Date: 20110811
  Receipt Date: 20110809
  Transmission Date: 20111222
  Serious: Yes (Death, Hospitalization, Other)
  Sender: FDA-Public Use
  Company Number: US-BAYER-2011-003807

PATIENT
  Age: 54 Year
  Sex: Male

DRUGS (2)
  1. INTERFERON BETA-1B [Suspect]
     Indication: SECONDARY PROGRESSIVE MULTIPLE SCLEROSIS
     Dosage: UNK
     Route: 058
     Dates: start: 19940804, end: 20080128
  2. INTERFERON BETA-1B [Suspect]
     Dosage: 8 MIU, QOD
     Route: 058
     Dates: start: 20100625, end: 20110630

REACTIONS (11)
  - ABASIA [None]
  - ACCIDENT [None]
  - TRAUMATIC LIVER INJURY [None]
  - TRAUMATIC LUNG INJURY [None]
  - PELVIC FRACTURE [None]
  - BRAIN INJURY [None]
  - CONTUSION [None]
  - LACERATION [None]
  - UROSEPSIS [None]
  - TRAUMATIC RENAL INJURY [None]
  - HYPOTENSION [None]
